FAERS Safety Report 18503883 (Version 1)
Quarter: 2020Q4

REPORT INFORMATION
  Report Type: Spontaneous
  Country: US (occurrence: US)
  Receive Date: 20201113
  Receipt Date: 20201113
  Transmission Date: 20210114
  Serious: Yes (Hospitalization, Other)
  Sender: FDA-Public Use
  Company Number: US-PURDUE-USA-2020-0165939

PATIENT
  Sex: Female

DRUGS (15)
  1. MORPHINE SULFATE (SIMILAR TO NDA 19-516) [Suspect]
     Active Substance: MORPHINE SULFATE
     Indication: PRODUCT USED FOR UNKNOWN INDICATION
     Dosage: UNK
     Route: 048
  2. OXYCODONE/ ACETAMINOPHEN TABLETS [Suspect]
     Active Substance: ACETAMINOPHEN\OXYCODONE HYDROCHLORIDE
     Indication: PRODUCT USED FOR UNKNOWN INDICATION
     Dosage: UNK
     Route: 048
  3. LORTAB [Suspect]
     Active Substance: ACETAMINOPHEN\HYDROCODONE BITARTRATE
     Indication: PRODUCT USED FOR UNKNOWN INDICATION
     Route: 065
  4. HYSINGLA ER [Suspect]
     Active Substance: HYDROCODONE BITARTRATE
     Indication: PRODUCT USED FOR UNKNOWN INDICATION
     Dosage: UNK
     Route: 048
  5. HYDROCODONE BITARTRATE (SIMILAR TO NDA 206627) [Suspect]
     Active Substance: HYDROCODONE BITARTRATE
     Indication: PRODUCT USED FOR UNKNOWN INDICATION
     Dosage: UNK
     Route: 048
  6. RYZOLT [Suspect]
     Active Substance: TRAMADOL HYDROCHLORIDE
     Indication: PRODUCT USED FOR UNKNOWN INDICATION
     Dosage: UNK
     Route: 048
  7. NORCO [Suspect]
     Active Substance: ACETAMINOPHEN\HYDROCODONE BITARTRATE
     Indication: PRODUCT USED FOR UNKNOWN INDICATION
     Dosage: UNK
     Route: 065
  8. OXYCONTIN [Suspect]
     Active Substance: OXYCODONE HYDROCHLORIDE
     Indication: PRODUCT USED FOR UNKNOWN INDICATION
     Dosage: UNK
     Route: 048
  9. TRAMADOL. [Suspect]
     Active Substance: TRAMADOL
     Indication: PRODUCT USED FOR UNKNOWN INDICATION
     Dosage: UNK
     Route: 065
  10. DARVOCET [Suspect]
     Active Substance: ACETAMINOPHEN\PROPOXYPHENE HYDROCHLORIDE
     Indication: PRODUCT USED FOR UNKNOWN INDICATION
     Dosage: UNK
     Route: 065
  11. BUPRENORPHINE TRANSDERMAL PATCH [Suspect]
     Active Substance: BUPRENORPHINE
     Indication: PRODUCT USED FOR UNKNOWN INDICATION
     Dosage: UNK
     Route: 062
  12. HYDROCODONE BITARTRATE AND ACETAMINOPHEN [Suspect]
     Active Substance: ACETAMINOPHEN\HYDROCODONE BITARTRATE
     Indication: PRODUCT USED FOR UNKNOWN INDICATION
     Dosage: UNK
     Route: 048
  13. OXYFAST [Suspect]
     Active Substance: OXYCODONE
     Indication: PRODUCT USED FOR UNKNOWN INDICATION
     Dosage: UNK
     Route: 065
  14. BUTRANS [Suspect]
     Active Substance: BUPRENORPHINE
     Indication: PRODUCT USED FOR UNKNOWN INDICATION
     Dosage: UNK
     Route: 062
  15. MS CONTIN [Suspect]
     Active Substance: MORPHINE SULFATE
     Indication: PRODUCT USED FOR UNKNOWN INDICATION
     Dosage: UNK
     Route: 048

REACTIONS (48)
  - Cognitive disorder [Unknown]
  - Mobility decreased [Unknown]
  - Drug dependence [Unknown]
  - Hypersomnia [Unknown]
  - Aggression [Unknown]
  - Drug withdrawal syndrome [Unknown]
  - Hyperlipidaemia [Unknown]
  - Urinary tract infection [Unknown]
  - Irritable bowel syndrome [Unknown]
  - Neuropathy peripheral [Unknown]
  - Visual impairment [Unknown]
  - Hypoacusis [Unknown]
  - Major depression [Unknown]
  - Confusional state [Unknown]
  - Amnesia [Unknown]
  - Arthritis [Unknown]
  - Asthenia [Unknown]
  - Anal incontinence [Unknown]
  - Overdose [Unknown]
  - Hypothyroidism [Unknown]
  - Cerebrovascular accident [Unknown]
  - Osteoarthritis [Unknown]
  - Constipation [Unknown]
  - Gait disturbance [Unknown]
  - Urinary incontinence [Unknown]
  - Anxiety [Unknown]
  - Disturbance in attention [Unknown]
  - Aphasia [Unknown]
  - Injury [Unknown]
  - Borderline personality disorder [Unknown]
  - Depression [Unknown]
  - Intervertebral disc degeneration [Unknown]
  - Back pain [Unknown]
  - Osteoporosis [Unknown]
  - Spinal stenosis [Unknown]
  - Insomnia [Unknown]
  - Pain in extremity [Unknown]
  - Balance disorder [Unknown]
  - Encephalopathy [Unknown]
  - Fall [Unknown]
  - Dyspnoea [Unknown]
  - Dysphagia [Unknown]
  - Dementia [Unknown]
  - Hypertension [Unknown]
  - Gastrointestinal ulcer [Unknown]
  - Gastrooesophageal reflux disease [Unknown]
  - Fracture [Unknown]
  - Drug abuse [Unknown]
